FAERS Safety Report 9964792 (Version 1)
Quarter: 2014Q1

REPORT INFORMATION
  Report Type: Spontaneous
  Country: US (occurrence: US)
  Receive Date: 20140305
  Receipt Date: 20140305
  Transmission Date: 20141002
  Serious: No
  Sender: FDA-Public Use
  Company Number: US-AMGEN-USASP2013091533

PATIENT
  Age: 59 Year
  Sex: Female

DRUGS (8)
  1. ENBREL [Suspect]
     Indication: PRODUCT USED FOR UNKNOWN INDICATION
     Dosage: 50 MG/ML, QWK
     Route: 058
     Dates: start: 2013
  2. AMLODIPINE [Concomitant]
     Dosage: 2.5 MG, UNK
  3. PREDNISONE [Concomitant]
     Dosage: 5MG/5ML UNK, UNK
  4. HYDROCHLOROTH [Concomitant]
     Dosage: 12.5 MG, UNK
  5. VITAMIN D                          /00107901/ [Concomitant]
     Dosage: 50000 UNIT, UNK
  6. CRESTOR [Concomitant]
     Dosage: 40 MG, UNK
  7. FISH OIL [Concomitant]
     Dosage: UNK
  8. NAPROXEN [Concomitant]
     Dosage: 500 MG, UNK

REACTIONS (2)
  - Drug ineffective [Unknown]
  - Arthropathy [Unknown]
